FAERS Safety Report 9798142 (Version 2)
Quarter: 2014Q1

REPORT INFORMATION
  Report Type: Spontaneous
  Country: JP (occurrence: JP)
  Receive Date: 20140106
  Receipt Date: 20140106
  Transmission Date: 20141002
  Serious: Yes (Other)
  Sender: FDA-Public Use
  Company Number: PHHY2013JP138850

PATIENT
  Age: 48 Year
  Sex: Female

DRUGS (2)
  1. NEORAL [Suspect]
     Indication: SYSTEMIC LUPUS ERYTHEMATOSUS
     Dosage: 50 MG, DAILY
     Route: 048
     Dates: start: 2010
  2. PREDNISOLONE [Suspect]
     Indication: SYSTEMIC LUPUS ERYTHEMATOSUS
     Dosage: 10 MG, DAILY
     Route: 048
     Dates: start: 2010

REACTIONS (7)
  - Bowen^s disease [Unknown]
  - Nodule [Unknown]
  - Scar [Unknown]
  - Dysplasia [Unknown]
  - Cervical dysplasia [Unknown]
  - Bowenoid papulosis [Recovering/Resolving]
  - Papilloma viral infection [Unknown]
